FAERS Safety Report 17770461 (Version 2)
Quarter: 2020Q3

REPORT INFORMATION
  Report Type: Spontaneous
  Country: GB (occurrence: GB)
  Receive Date: 20200512
  Receipt Date: 20200807
  Transmission Date: 20201102
  Serious: Yes (Hospitalization, Other)
  Sender: FDA-Public Use
  Company Number: GB-MACLEODS PHARMACEUTICALS US LTD-MAC2020026414

PATIENT

DRUGS (4)
  1. LIDOCAINE. [Suspect]
     Active Substance: LIDOCAINE
     Dosage: 200 MILLIGRAM, SINGLE, SPRAY 5 ML VOLUME ADMINISTERED 4% (IN 0.1 ML ALIQUOTS)
     Route: 061
  2. LIDOCAINE. [Suspect]
     Active Substance: LIDOCAINE
     Dosage: 40 MILLIGRAM, SINGLE, 10 PERCENT, 1 TOTAL, VOLUME ADMINISTERED 4 ? 0.1 ML, 4 SPRAYS
     Route: 065
  3. LIDOCAINE. [Suspect]
     Active Substance: LIDOCAINE
     Indication: LOCAL ANAESTHESIA
     Dosage: 200 MILLIGRAM, SINGLE, 4 PERCENT 1 TOTAL, 5 ML (VOLUME ADMINISTERED), NEBULISER INHALATION
     Route: 055
  4. CO?PHENYLCAINE 0.5% [Suspect]
     Active Substance: LIDOCAINE HYDROCHLORIDE\PHENYLEPHRINE HYDROCHLORIDE
     Indication: LOCAL ANAESTHESIA
     Dosage: UNK, SINGLE, VOLUME ADMINISTERED 2.5 ML; 125 MG LIDOCAINE, NASAL SPRAY
     Route: 045

REACTIONS (9)
  - Cough [Recovered/Resolved]
  - Dizziness [Recovered/Resolved]
  - Nausea [Recovered/Resolved]
  - Agitation [Recovered/Resolved]
  - Sinus bradycardia [Recovered/Resolved]
  - Vomiting [Recovered/Resolved]
  - Local anaesthetic systemic toxicity [Recovered/Resolved]
  - Dysgeusia [Recovered/Resolved]
  - Tinnitus [Recovered/Resolved]
